FAERS Safety Report 25043873 (Version 1)
Quarter: 2025Q1

REPORT INFORMATION
  Report Type: Spontaneous
  Country: GB (occurrence: GB)
  Receive Date: 20250306
  Receipt Date: 20250306
  Transmission Date: 20250408
  Serious: Yes (Death)
  Sender: BIOGEN
  Company Number: GB-BIOGEN-2025BI01302943

PATIENT
  Sex: Male

DRUGS (1)
  1. TECFIDERA [Suspect]
     Active Substance: DIMETHYL FUMARATE
     Indication: Multiple sclerosis
     Route: 050
     Dates: start: 202111, end: 20250303

REACTIONS (1)
  - Death [Fatal]
